FAERS Safety Report 9819474 (Version 2)
Quarter: 2014Q1

REPORT INFORMATION
  Report Type: Spontaneous
  Country: BE (occurrence: BE)
  Receive Date: 20140115
  Receipt Date: 20140130
  Transmission Date: 20141002
  Serious: Yes (Death)
  Sender: FDA-Public Use
  Company Number: BE-CELGENEUS-013-21880-14010988

PATIENT
  Age: 80 Year
  Sex: 0

DRUGS (2)
  1. REVLIMID [Suspect]
     Indication: 5Q MINUS SYNDROME
     Route: 048
     Dates: start: 20120316
  2. REVLIMID [Suspect]
     Route: 048
     Dates: end: 20131028

REACTIONS (1)
  - Breast cancer metastatic [Fatal]
